FAERS Safety Report 4407433-8 (Version None)
Quarter: 2004Q3

REPORT INFORMATION
  Report Type: 
  Country: None (occurrence: None)
  Receive Date: 20040726
  Receipt Date: 20040719
  Transmission Date: 20050211
  Serious: Yes (Other)
  Sender: FDA-Public Use
  Company Number: 200415472US

PATIENT
  Age: 60 Year
  Sex: Male

DRUGS (7)
  1. LANTUS [Suspect]
     Indication: DIABETES MELLITUS NON-INSULIN-DEPENDENT
     Dosage: DOSE UNIT: UNITS
     Dates: start: 20021001
  2. NORVASC [Concomitant]
     Dosage: DOSE: UNK
  3. COZAAR [Concomitant]
     Dosage: DOSE: UNK
  4. PRANDIN [Concomitant]
     Dosage: DOSE: UNK
  5. LIPITOR [Concomitant]
     Dosage: DOSE: UNK
  6. SEROQUEL [Concomitant]
     Dosage: DOSE: UNK
  7. AMARYL [Concomitant]
     Dosage: DOSE: UNK
     Dates: end: 20020101

REACTIONS (1)
  - THROMBOCYTOPENIA [None]
